FAERS Safety Report 10137417 (Version 1)
Quarter: 2014Q2

REPORT INFORMATION
  Report Type: Spontaneous
  Country: US (occurrence: US)
  Receive Date: 20140429
  Receipt Date: 20140429
  Transmission Date: 20141212
  Serious: Yes (Hospitalization, Other)
  Sender: FDA-Public Use
  Company Number: US-BAYER-2014-059237

PATIENT
  Age: 35 Year
  Sex: Female
  Weight: 127.44 kg

DRUGS (12)
  1. YAZ [Suspect]
  2. ALEVE [Concomitant]
     Dosage: UNK UNK, TID
  3. TYLENOL [PARACETAMOL] [Concomitant]
     Dosage: 1000 MG, BID
  4. XANAX [Concomitant]
     Dosage: 0.25 MG, PRN
  5. XANAX [Concomitant]
     Dosage: 25 - .5
  6. PRILOSEC [Concomitant]
  7. VITAMIN C [Concomitant]
  8. MULTIVITAMIN [Concomitant]
  9. ALLEGRA [Concomitant]
  10. METFORMIN [Concomitant]
     Indication: CONGENITAL CYSTIC KIDNEY DISEASE
  11. SOLU-MEDROL [Concomitant]
  12. BENADRYL [Concomitant]

REACTIONS (3)
  - Pulmonary embolism [None]
  - Deep vein thrombosis [None]
  - Deep vein thrombosis [None]
